FAERS Safety Report 5465395-9 (Version None)
Quarter: 2007Q3

REPORT INFORMATION
  Report Type: 
  Country: None (occurrence: None)
  Receive Date: 20070920
  Receipt Date: 20070920
  Transmission Date: 20080115
  Serious: Yes (Hospitalization)
  Sender: FDA-Public Use
  Company Number: None

PATIENT
  Age: 81 Year
  Sex: Male

DRUGS (1)
  1. FLUOROURACIL [Suspect]
     Indication: COLON CANCER
     Dosage: 4080MG OTHER IV
     Route: 042
     Dates: start: 20070604, end: 20070626

REACTIONS (6)
  - CONJUNCTIVITIS [None]
  - DRUG TOXICITY [None]
  - IRITIS [None]
  - MUCOSAL INFLAMMATION [None]
  - PHOTOSENSITIVITY REACTION [None]
  - SJOGREN'S SYNDROME [None]
